FAERS Safety Report 18559842 (Version 3)
Quarter: 2022Q3

REPORT INFORMATION
  Report Type: Spontaneous
  Country: CA (occurrence: CA)
  Receive Date: 20201130
  Receipt Date: 20220713
  Transmission Date: 20221026
  Serious: Yes (Hospitalization, Other)
  Sender: FDA-Public Use
  Company Number: CA-GLAXOSMITHKLINE-US2020GSK235945

PATIENT

DRUGS (1)
  1. AVANDIA [Suspect]
     Active Substance: ROSIGLITAZONE MALEATE
     Indication: Diabetes mellitus
     Dosage: UNK UNK, QD
     Route: 065
     Dates: start: 2001, end: 20070918

REACTIONS (4)
  - Coronary artery disease [Unknown]
  - Coronary artery stenosis [Unknown]
  - Coronary artery bypass [Unknown]
  - Cardiac disorder [Unknown]
